FAERS Safety Report 8136104-X (Version None)
Quarter: 2012Q1

REPORT INFORMATION
  Report Type: 
  Country: None (occurrence: None)
  Receive Date: 20120214
  Receipt Date: 20111129
  Transmission Date: 20120608
  Serious: No
  Sender: FDA-Public Use
  Company Number: US-COVIDIEN/TYCO HEALTHCARE/MALLINCKRODT-T201102600

PATIENT
  Age: 74 Year
  Sex: Female

DRUGS (2)
  1. FENTANYL-100 [Suspect]
     Dosage: 75 UG/HR, UNK
     Dates: start: 20110401
  2. FENTANYL-100 [Suspect]
     Dosage: 50 UG/HR, UNK
     Dates: start: 20110901

REACTIONS (3)
  - DEPRESSION [None]
  - LIBIDO INCREASED [None]
  - WITHDRAWAL SYNDROME [None]
